FAERS Safety Report 6141876-X (Version None)
Quarter: 2009Q2

REPORT INFORMATION
  Report Type: 
  Country: None (occurrence: None)
  Receive Date: 20090402
  Receipt Date: 20090327
  Transmission Date: 20091009
  Serious: Yes (Other)
  Sender: FDA-Public Use
  Company Number: PHHY2009GB09015

PATIENT
  Age: 66 Year
  Sex: Male

DRUGS (10)
  1. ZOMETA [Suspect]
     Indication: METASTASES TO BONE
  2. ZOMETA [Suspect]
     Indication: PROSTATE CANCER
  3. STEROIDS NOS [Concomitant]
  4. TRAMADOL [Concomitant]
     Dosage: 50 MG, UNK
     Route: 048
  5. OMEPRAZOLE [Concomitant]
     Route: 048
  6. TAMSULOSIN HCL [Concomitant]
     Route: 048
  7. DEXAMETHASONE TAB [Concomitant]
     Route: 048
  8. FERROUS SULFATE TAB [Concomitant]
     Route: 048
  9. ASPIRIN [Concomitant]
     Dosage: 75 MG/ DAY
     Route: 048
  10. HORMONES [Concomitant]

REACTIONS (3)
  - LOWER RESPIRATORY TRACT INFECTION [None]
  - OSTEONECROSIS [None]
  - PAIN IN JAW [None]
